FAERS Safety Report 15751398 (Version 2)
Quarter: 2019Q2

REPORT INFORMATION
  Report Type: Spontaneous
  Country: US (occurrence: US)
  Receive Date: 20181221
  Receipt Date: 20190621
  Transmission Date: 20190711
  Serious: Yes (Death, Other)
  Sender: FDA-Public Use
  Company Number: US-GLAXOSMITHKLINE-US2018GSK230597

PATIENT
  Sex: Male

DRUGS (3)
  1. OMEPRAZOLE. [Suspect]
     Active Substance: OMEPRAZOLE
     Indication: GASTROOESOPHAGEAL REFLUX DISEASE
     Dosage: 40 MG, UNK
     Route: 065
  2. OMEPRAZOLE. [Suspect]
     Active Substance: OMEPRAZOLE
     Dosage: 20 MG, QD
     Route: 048
  3. PREVACID [Suspect]
     Active Substance: LANSOPRAZOLE
     Indication: GASTROOESOPHAGEAL REFLUX DISEASE
     Dosage: 20 MG, QD
     Route: 065

REACTIONS (12)
  - Chronic kidney disease [Unknown]
  - Cardiac failure congestive [Fatal]
  - Chronic kidney disease-mineral and bone disorder [Unknown]
  - Proteinuria [Unknown]
  - Renal failure [Unknown]
  - Acute kidney injury [Fatal]
  - Fluid overload [Fatal]
  - Nephrolithiasis [Unknown]
  - Nephrogenic anaemia [Unknown]
  - Micturition urgency [Unknown]
  - Diabetic nephropathy [Unknown]
  - Dysuria [Unknown]
